FAERS Safety Report 14092372 (Version 1)
Quarter: 2017Q4

REPORT INFORMATION
  Report Type: Spontaneous
  Country: RU (occurrence: RU)
  Receive Date: 20171016
  Receipt Date: 20171016
  Transmission Date: 20180321
  Serious: Yes (Death)
  Sender: FDA-Public Use
  Company Number: RU-ACTELION-A-CH2017-160757

PATIENT
  Age: 42 Year
  Sex: Female

DRUGS (1)
  1. TRACLEER [Suspect]
     Active Substance: BOSENTAN
     Indication: PULMONARY ARTERIAL HYPERTENSION
     Dosage: 125 MG, BID
     Route: 048
     Dates: start: 201203, end: 201708

REACTIONS (3)
  - Pulmonary arterial hypertension [Fatal]
  - Viral upper respiratory tract infection [Unknown]
  - Condition aggravated [Fatal]

NARRATIVE: CASE EVENT DATE: 2017
